FAERS Safety Report 11038843 (Version 1)
Quarter: 2015Q2

REPORT INFORMATION
  Report Type: Spontaneous
  Country: GB (occurrence: GB)
  Receive Date: 20150416
  Receipt Date: 20150416
  Transmission Date: 20150821
  Serious: Yes (Other)
  Sender: FDA-Public Use
  Company Number: GB-PFIZER INC-2015125127

PATIENT
  Age: 73 Year
  Sex: Female
  Weight: 67 kg

DRUGS (22)
  1. CARMELLOSE [Concomitant]
     Dosage: USE WHEN REQUIRED
     Dates: start: 20131018
  2. DILTIAZEM HYDROCHLORIDE. [Concomitant]
     Active Substance: DILTIAZEM HYDROCHLORIDE
     Dosage: 1 DF, 1X/DAY
     Dates: start: 20140122
  3. PREGABALIN. [Suspect]
     Active Substance: PREGABALIN
     Dosage: UNK
     Dates: start: 20150331
  4. ALENDRONIC ACID [Concomitant]
     Active Substance: ALENDRONIC ACID
     Dosage: TAKE ONE WEEKLY (EXACTLY AS INSTRUCTED)
     Dates: start: 20141009
  5. DIAZEPAM. [Concomitant]
     Active Substance: DIAZEPAM
     Dosage: TAKE ONE AS NEEDED
     Dates: start: 20110513
  6. GABAPENTIN. [Concomitant]
     Active Substance: GABAPENTIN
     Dosage: 1 DF, 1X/DAY (AT NIGHT FOR 5 DAYS, THEN FOLLOW SCHEDULE ..)
     Dates: start: 20150312
  7. PARACETAMOL [Concomitant]
     Active Substance: ACETAMINOPHEN
     Dosage: TAKE ONE OR TWO TABLETS FOUR TIMES A DAY WHEN R...
     Dates: start: 20110513
  8. PRAVASTATIN [Concomitant]
     Active Substance: PRAVASTATIN\PRAVASTATIN SODIUM
     Dosage: 1 DF, 1X/DAY
     Dates: start: 20140122
  9. ACENOCOUMAROL [Concomitant]
     Active Substance: ACENOCOUMAROL
     Dosage: USE AS DIRECTED
     Dates: start: 20120704
  10. ADCAL [Concomitant]
     Dosage: ONE DAILY IN ADDITION TO GOOD DIET!
     Dates: start: 20130816
  11. FUSIDIC ACID [Concomitant]
     Active Substance: FUSIDIC ACID
     Dosage: 1 DF, 2X/DAY
     Dates: start: 20150216, end: 20150217
  12. ISPAGHULA EXTRACT\PSYLLIUM [Concomitant]
     Active Substance: PLANTAGO OVATA SEED\PLANTAGO SEED
     Dosage: 1 DF, 1X/DAY ( AFTER FOOD  PLAIN)
     Dates: start: 20110526, end: 20150106
  13. MACROGOL [Concomitant]
     Active Substance: POLYETHYLENE GLYCOLS
     Dosage: USE AS DIRECTED
     Dates: start: 20110812
  14. CLOTRIMAZOLE. [Concomitant]
     Active Substance: CLOTRIMAZOLE
     Dosage: USE AS NEEDED UP TO WEEKLY
     Dates: start: 20120518
  15. DOSULEPIN HYDROCHLORIDE [Concomitant]
     Active Substance: DOTHIEPIN HYDROCHLORIDE
     Dosage: 1 DF, 1X/DAY
     Dates: start: 20110513
  16. GLYCERYL TRINITRATE [Concomitant]
     Active Substance: NITROGLYCERIN
     Dosage: ONE PUFF AS NEEDED
     Dates: start: 20140814
  17. PANTOPRAZOLE [Concomitant]
     Active Substance: PANTOPRAZOLE SODIUM
     Dosage: 1 DF, 1X/DAY
     Dates: start: 20130322
  18. MOMETASONE [Concomitant]
     Active Substance: MOMETASONE
     Dosage: 2 DF, 1X/DAY
     Route: 045
     Dates: start: 20110824
  19. ALVERINE CITRATE [Concomitant]
     Active Substance: ALVERINE CITRATE
     Dosage: 1 DF, 3X/DAY
     Dates: start: 20110513
  20. GAVISCON [Concomitant]
     Active Substance: ALUMINUM HYDROXIDE\MAGNESIUM CARBONATE
     Dosage: 5ML OR 10ML  3 TIMES DAILY AFTER FOOD AND AT NI...
     Dates: start: 20110526
  21. ZOPICLONE [Concomitant]
     Active Substance: ZOPICLONE
     Dosage: 2 DF, 1X/DAY
     Dates: start: 20110527
  22. FERROUS GLUCONATE [Concomitant]
     Active Substance: FERROUS GLUCONATE
     Dosage: 2 DF, 1X/DAY
     Dates: start: 20140414

REACTIONS (3)
  - Eye haemorrhage [Unknown]
  - Vertigo [Unknown]
  - Eyelid contusion [Unknown]

NARRATIVE: CASE EVENT DATE: 20150331
